FAERS Safety Report 23729341 (Version 2)
Quarter: 2024Q2

REPORT INFORMATION
  Report Type: Spontaneous
  Country: US (occurrence: US)
  Receive Date: 20240410
  Receipt Date: 20240509
  Transmission Date: 20240716
  Serious: No
  Sender: FDA-Public Use
  Company Number: US-LUNDBECK-DKLU3075977

PATIENT
  Age: 67 Year
  Sex: Female
  Weight: 200 kg

DRUGS (1)
  1. VYEPTI [Suspect]
     Active Substance: EPTINEZUMAB-JJMR
     Indication: Migraine
     Route: 041
     Dates: start: 20240227

REACTIONS (2)
  - Therapeutic response shortened [Unknown]
  - Migraine [Not Recovered/Not Resolved]
